FAERS Safety Report 13306238 (Version 2)
Quarter: 2017Q1

REPORT INFORMATION
  Report Type: Report from Study
  Country: US (occurrence: CA)
  Receive Date: 20170308
  Receipt Date: 20170327
  Transmission Date: 20170428
  Serious: Yes (Hospitalization, Other)
  Sender: FDA-Public Use
  Company Number: US-SUNOVION-2017SUN000938

PATIENT
  Age: 69 Year
  Sex: Female

DRUGS (9)
  1. GLYCOPYRROLATE. [Suspect]
     Active Substance: GLYCOPYRROLATE
     Dosage: 1 DF (ONE PUFF), QD; REGIMEN #2
     Route: 055
  2. XOLAIR [Suspect]
     Active Substance: OMALIZUMAB
     Indication: ASTHMA
     Dosage: 300 MG, EVERY 4 WEEKS; REGIMEN #1
     Route: 058
     Dates: start: 20151019
  3. XOLAIR [Suspect]
     Active Substance: OMALIZUMAB
     Dosage: UNK; REGIMEN #2
     Route: 058
     Dates: start: 20151116
  4. SYMBICORT [Concomitant]
     Active Substance: BUDESONIDE\FORMOTEROL FUMARATE DIHYDRATE
     Dosage: UNK
  5. GLYCOPYRROLATE. [Suspect]
     Active Substance: GLYCOPYRROLATE
     Indication: ASTHMA
     Dosage: UNK; REGIMEN #1
     Route: 055
     Dates: start: 201504
  6. CORTISONE [Concomitant]
     Active Substance: CORTISONE\HYDROCORTISONE
     Dosage: UNK
  7. XOLAIR [Suspect]
     Active Substance: OMALIZUMAB
     Dosage: UNK; REGIMEN #3
     Route: 058
     Dates: start: 20160307
  8. XOLAIR [Suspect]
     Active Substance: OMALIZUMAB
     Dosage: UNK; REGIMEN #4
     Route: 058
     Dates: start: 20161125
  9. SYMBICORT [Concomitant]
     Active Substance: BUDESONIDE\FORMOTEROL FUMARATE DIHYDRATE
     Dosage: 8 DF (8 PUFFS PER DAY), QD
     Dates: end: 20160324

REACTIONS (20)
  - Headache [Unknown]
  - Pain in extremity [Unknown]
  - Abasia [Unknown]
  - Animal bite [Unknown]
  - Sleep disorder [Unknown]
  - Pneumonia [Unknown]
  - Oxygen saturation decreased [Unknown]
  - Choking sensation [Unknown]
  - Blood pressure decreased [Recovering/Resolving]
  - Dizziness [Recovering/Resolving]
  - Product use issue [Unknown]
  - Pyrexia [Unknown]
  - Dry mouth [Unknown]
  - Gout [Not Recovered/Not Resolved]
  - Fatigue [Unknown]
  - Malaise [Not Recovered/Not Resolved]
  - Fall [Unknown]
  - Injection site pain [Unknown]
  - Pneumonia bacterial [Unknown]
  - Cough [Unknown]

NARRATIVE: CASE EVENT DATE: 2015
